FAERS Safety Report 10005593 (Version 1)
Quarter: 2014Q1

REPORT INFORMATION
  Report Type: Spontaneous
  Country: US (occurrence: US)
  Receive Date: 20140313
  Receipt Date: 20140313
  Transmission Date: 20141002
  Serious: No
  Sender: FDA-Public Use
  Company Number: US-BIOGENIDEC-2014BI020300

PATIENT
  Sex: Female

DRUGS (12)
  1. TECFIDERA [Suspect]
     Indication: MULTIPLE SCLEROSIS
     Route: 048
  2. TECFIDERA [Suspect]
     Indication: MULTIPLE SCLEROSIS
     Route: 048
     Dates: end: 201402
  3. BACLOFEN [Concomitant]
  4. CETIRIZINE HCL [Concomitant]
  5. CITALOPRAM HYDROBROMIDE [Concomitant]
  6. GABAPENTIN [Concomitant]
  7. HYDROCODONE-ACETAMINOPHEN [Concomitant]
  8. LEVOTHYROXINE SODIUM [Concomitant]
  9. NABUMETONE [Concomitant]
  10. OMEPRAZOLE [Concomitant]
  11. PRAMIPEXOLE DIHYDROCHLORIDE [Concomitant]
  12. VITAMIN D [Concomitant]

REACTIONS (3)
  - Dehydration [Unknown]
  - Nausea [Unknown]
  - Retching [Unknown]
